FAERS Safety Report 20726347 (Version 2)
Quarter: 2022Q2

REPORT INFORMATION
  Report Type: Spontaneous
  Country: US (occurrence: US)
  Receive Date: 20220419
  Receipt Date: 20220519
  Transmission Date: 20220721
  Serious: No
  Sender: FDA-Public Use
  Company Number: US-PFIZER INC-202101352610

PATIENT
  Age: 84 Year
  Sex: Female

DRUGS (1)
  1. IBRANCE [Suspect]
     Active Substance: PALBOCICLIB
     Dosage: 100 MG

REACTIONS (8)
  - Alopecia [Unknown]
  - Blood test abnormal [Unknown]
  - Musculoskeletal discomfort [Unknown]
  - Stress [Unknown]
  - Hair texture abnormal [Unknown]
  - Sleep disorder [Unknown]
  - Fatigue [Unknown]
  - Product dose omission issue [Unknown]
